FAERS Safety Report 12252594 (Version 4)
Quarter: 2016Q2

REPORT INFORMATION
  Report Type: Report from Study
  Country: IT (occurrence: IT)
  Receive Date: 20160411
  Receipt Date: 20160523
  Transmission Date: 20160815
  Serious: Yes (Other)
  Sender: FDA-Public Use
  Company Number: IT-TEVA-649826ACC

PATIENT
  Age: 44 Year
  Sex: Female

DRUGS (1)
  1. COPAXONE [Suspect]
     Active Substance: GLATIRAMER ACETATE
     Indication: RELAPSING-REMITTING MULTIPLE SCLEROSIS
     Dates: start: 20151125, end: 20160118

REACTIONS (9)
  - Injection site swelling [Not Recovered/Not Resolved]
  - Injection site pruritus [Not Recovered/Not Resolved]
  - Monoplegia [Recovered/Resolved with Sequelae]
  - Abdominal pain upper [Recovered/Resolved]
  - Anaphylactic shock [Recovered/Resolved]
  - Fatigue [Not Recovered/Not Resolved]
  - Asphyxia [Recovered/Resolved]
  - Swelling face [Recovered/Resolved]
  - Temperature intolerance [Recovered/Resolved]

NARRATIVE: CASE EVENT DATE: 20160115
